FAERS Safety Report 5523086-X (Version None)
Quarter: 2007Q4

REPORT INFORMATION
  Report Type: 
  Country: None (occurrence: None)
  Receive Date: 20071116
  Receipt Date: 20071102
  Transmission Date: 20080405
  Serious: Yes (Other)
  Sender: FDA-Public Use
  Company Number: 2007S1011442

PATIENT
  Age: 36 Year
  Sex: Female

DRUGS (7)
  1. MIRTAZAPINE [Suspect]
     Indication: DEPRESSION
     Dosage: 45 MG
     Dates: end: 20070910
  2. DICLOFENAC SODIUM [Concomitant]
  3. ORLISTAT [Concomitant]
  4. PAROXETINE [Concomitant]
  5. QUININE SULFATE [Concomitant]
  6. SULPIRIDE [Concomitant]
  7. ZOPICLONE [Concomitant]

REACTIONS (1)
  - MUSCLE SPASMS [None]
